FAERS Safety Report 8184500 (Version 4)
Quarter: 2012Q4

REPORT INFORMATION
  Report Type: Report from Study
  Country: AT (occurrence: AT)
  Receive Date: 20111018
  Receipt Date: 20121204
  Transmission Date: 20130627
  Serious: Yes (Hospitalization)
  Sender: FDA-Public Use
  Company Number: AT-AMGEN-AUTCT2011052652

PATIENT
  Age: 68 Year
  Sex: Female

DRUGS (4)
  1. DENOSUMAB [Suspect]
     Indication: OSTEOPOROSIS POSTMENOPAUSAL
     Dosage: 60 mg, q6mo
     Route: 058
     Dates: start: 20041117, end: 20110526
  2. MAXI CAL [Concomitant]
     Dosage: 1000 mg, qd
     Route: 048
     Dates: start: 2001
  3. CODIOVAN [Concomitant]
     Dosage: UNK UNK, qd
     Route: 048
     Dates: start: 20070601
  4. INEGY [Concomitant]
     Dosage: UNK UNK, qd
     Route: 048
     Dates: start: 20081113

REACTIONS (1)
  - Cerebrovascular accident [Unknown]
